FAERS Safety Report 24356686 (Version 1)
Quarter: 2024Q3

REPORT INFORMATION
  Report Type: Spontaneous
  Country: US (occurrence: US)
  Receive Date: 20240924
  Receipt Date: 20240924
  Transmission Date: 20241017
  Serious: No
  Sender: CIPLA
  Company Number: US-CIPLA LTD.-2024US04215

PATIENT

DRUGS (6)
  1. DICLOFENAC [Suspect]
     Active Substance: DICLOFENAC
     Indication: Arthritis
     Dosage: (3- 4 TIMES A DAY OR AS NEEDED)
     Route: 061
     Dates: start: 2019
  2. DICLOFENAC [Suspect]
     Active Substance: DICLOFENAC
     Indication: Osteoporosis
  3. DICLOFENAC [Suspect]
     Active Substance: DICLOFENAC
     Indication: Lumbar spinal stenosis
  4. DICLOFENAC [Suspect]
     Active Substance: DICLOFENAC
     Indication: Actinic keratosis
  5. TYLENOL [Concomitant]
     Active Substance: ACETAMINOPHEN
     Indication: Pain
     Dosage: UNK
     Route: 065
  6. IBUPROFEN [Concomitant]
     Active Substance: IBUPROFEN
     Indication: Pain
     Dosage: UNK
     Route: 065

REACTIONS (2)
  - Arthritis [Unknown]
  - Drug ineffective for unapproved indication [Unknown]
